FAERS Safety Report 5804029-8 (Version None)
Quarter: 2008Q3

REPORT INFORMATION
  Report Type: 
  Country: None (occurrence: None)
  Receive Date: 20080707
  Receipt Date: 20080623
  Transmission Date: 20090109
  Serious: Yes (Other)
  Sender: FDA-Public Use
  Company Number: GXKR2008GB05783

PATIENT
  Sex: Female

DRUGS (6)
  1. LABETALOL (NGX) (LABETALOL) UNKNOWN [Suspect]
     Indication: PREGNANCY INDUCED HYPERTENSION
     Dosage: 100 MG, TID
  2. ACETYLSALICYLIC ACID SRT [Concomitant]
  3. FERROUS SULPHATE (FERROUS SULFATE) [Concomitant]
  4. METHYLDOPA [Concomitant]
  5. NIFEDIPINE [Concomitant]
  6. ACETAMINOPHEN [Concomitant]

REACTIONS (3)
  - CAESAREAN SECTION [None]
  - DRUG EXPOSURE DURING PREGNANCY [None]
  - PREMATURE LABOUR [None]
